FAERS Safety Report 8235628-4 (Version None)
Quarter: 2012Q1

REPORT INFORMATION
  Report Type: 
  Country: None (occurrence: None)
  Receive Date: 20120323
  Receipt Date: 20120314
  Transmission Date: 20120608
  Serious: Yes (Hospitalization, Other)
  Sender: FDA-Public Use
  Company Number: JPI-P-019382

PATIENT
  Age: 56 Year
  Sex: Female
  Weight: 129.7287 kg

DRUGS (10)
  1. CLONIDINE [Concomitant]
  2. AMLODIPINE BESYLATE [Concomitant]
  3. CARBIDOPA AND LEVODOPA [Concomitant]
  4. HYOSCYAMINE [Concomitant]
  5. LOSARTAN POTASSIUM [Concomitant]
  6. XYREM [Suspect]
     Indication: CATAPLEXY
     Dosage: 6 GM (3 GM,2 IN 1 D),ORAL
     Route: 048
     Dates: start: 20030410
  7. MULTIPLE UNSPECIFIED MEDICATIONS [Concomitant]
  8. WARFARIN SODIUM [Concomitant]
  9. ALLOPURINOL [Concomitant]
  10. FUROSEMIDE [Concomitant]

REACTIONS (13)
  - HYPERSOMNIA [None]
  - HYPERTENSION [None]
  - COUGH [None]
  - BACK PAIN [None]
  - CEREBROVASCULAR ACCIDENT [None]
  - CHONDROPATHY [None]
  - CONTUSION [None]
  - LATEX ALLERGY [None]
  - HYPOAESTHESIA [None]
  - VERTIGO [None]
  - PRURITUS [None]
  - SLEEP APNOEA SYNDROME [None]
  - UTERINE LEIOMYOMA [None]
